FAERS Safety Report 15244949 (Version 1)
Quarter: 2018Q3

REPORT INFORMATION
  Report Type: Spontaneous
  Country: FR (occurrence: FR)
  Receive Date: 20180806
  Receipt Date: 20180806
  Transmission Date: 20181010
  Serious: Yes (Hospitalization, Other)
  Sender: FDA-Public Use
  Company Number: FR-MYLANLABS-2018M1057743

PATIENT
  Age: 15 Year
  Sex: Male

DRUGS (3)
  1. PROMETHAZINE [Suspect]
     Active Substance: PROMETHAZINE\PROMETHAZINE HYDROCHLORIDE
     Indication: PRODUCT USED FOR UNKNOWN INDICATION
     Dosage: 30 DF, (THREE 10?TABLET PACKS)
     Route: 048
  2. EUPHON                             /00959801/ [Suspect]
     Active Substance: HERBALS
     Dosage: UNK
  3. EUPHON                             /00959801/ [Suspect]
     Active Substance: HERBALS
     Indication: PRODUCT USED FOR UNKNOWN INDICATION
     Dosage: 300?ML BOTTLE; A CODEINE?BASED COUGH SYRUP, I.E. 1 MG/ML
     Route: 048

REACTIONS (5)
  - Drug abuse [Recovered/Resolved]
  - Confusional state [Recovered/Resolved]
  - Agitation [Recovered/Resolved]
  - Somnolence [Recovered/Resolved]
  - Hallucination, visual [Recovered/Resolved]
